FAERS Safety Report 16002756 (Version 4)
Quarter: 2019Q4

REPORT INFORMATION
  Report Type: Spontaneous
  Country: US (occurrence: US)
  Receive Date: 20190225
  Receipt Date: 20191004
  Transmission Date: 20200122
  Serious: Yes (Other)
  Sender: FDA-Public Use
  Company Number: US-SA-2019SA046326

PATIENT
  Age: 42 Year
  Sex: Female
  Weight: 90.7 kg

DRUGS (33)
  1. ADRIAMYCIN [Concomitant]
     Active Substance: DOXORUBICIN HYDROCHLORIDE
     Indication: INFLAMMATORY CARCINOMA OF THE BREAST
     Dosage: UNK
     Dates: start: 20100316, end: 20100316
  2. ADRIAMYCIN [Concomitant]
     Active Substance: DOXORUBICIN HYDROCHLORIDE
     Dosage: UNK
     Dates: start: 20120727, end: 20120727
  3. ADRUCIL [Concomitant]
     Active Substance: FLUOROURACIL
     Indication: INFLAMMATORY CARCINOMA OF THE BREAST
     Dosage: UNK
     Dates: start: 20100316, end: 20100316
  4. LIPITOR [Concomitant]
     Active Substance: ATORVASTATIN CALCIUM
     Dosage: UNK
     Dates: start: 20091117, end: 20140121
  5. EFUDEX [Concomitant]
     Active Substance: FLUOROURACIL
     Indication: INFLAMMATORY CARCINOMA OF THE BREAST
     Dosage: UNK UNK, Q3W
     Dates: start: 20100319, end: 20100319
  6. PACLITAXEL. [Concomitant]
     Active Substance: PACLITAXEL
     Dosage: UNK
     Dates: start: 20120727, end: 20120727
  7. PLATINOL AQ [Concomitant]
     Indication: INFLAMMATORY CARCINOMA OF THE BREAST
     Dosage: UNK
     Dates: start: 20100316, end: 20100316
  8. TAXOTERE [Suspect]
     Active Substance: DOCETAXEL
     Dosage: UNK UNK, Q3W
     Route: 042
     Dates: start: 20120618, end: 20120618
  9. EFUDEX [Concomitant]
     Active Substance: FLUOROURACIL
     Dosage: UNK, Q3W
     Dates: start: 20120618, end: 20120618
  10. NEOSAR [Concomitant]
     Active Substance: CYCLOPHOSPHAMIDE
     Dosage: UNK UNK, Q3W
     Dates: start: 20120618, end: 20120618
  11. AMBIEN [Concomitant]
     Active Substance: ZOLPIDEM TARTRATE
     Dosage: UNK
     Dates: start: 20091117, end: 20140121
  12. IMODIUM [Concomitant]
     Active Substance: LOPERAMIDE HYDROCHLORIDE
     Dosage: UNK
     Dates: start: 20091117, end: 20140121
  13. PACLITAXEL. [Concomitant]
     Active Substance: PACLITAXEL
     Indication: INFLAMMATORY CARCINOMA OF THE BREAST
     Dosage: UNK
     Dates: start: 20100316, end: 20100316
  14. NAVELBINE [Concomitant]
     Active Substance: VINORELBINE TARTRATE
     Dosage: UNK
     Dates: start: 20120727, end: 20120727
  15. CYTOXAN [Concomitant]
     Active Substance: CYCLOPHOSPHAMIDE
     Indication: INFLAMMATORY CARCINOMA OF THE BREAST
     Dosage: UNK
     Dates: start: 20100316, end: 20100316
  16. TAXOTERE [Suspect]
     Active Substance: DOCETAXEL
     Indication: INFLAMMATORY CARCINOMA OF THE BREAST
     Dosage: UNK UNK, Q3W
     Route: 042
     Dates: start: 20100319, end: 20100319
  17. NEOSAR [Concomitant]
     Active Substance: CYCLOPHOSPHAMIDE
     Indication: INFLAMMATORY CARCINOMA OF THE BREAST
     Dosage: UNK UNK, Q3W
     Dates: start: 20100319, end: 20100319
  18. VALTREX [Concomitant]
     Active Substance: VALACYCLOVIR HYDROCHLORIDE
     Dosage: UNK
     Dates: start: 20091117, end: 20140121
  19. TOPROL XL [Concomitant]
     Active Substance: METOPROLOL SUCCINATE
     Dosage: UNK
     Dates: start: 20091117, end: 20140121
  20. MITOXANTRONE [Concomitant]
     Active Substance: MITOXANTRONE HYDROCHLORIDE
     Indication: INFLAMMATORY CARCINOMA OF THE BREAST
     Dosage: UNK UNK, Q3W
     Dates: start: 20100319, end: 20100319
  21. NAVELBINE [Concomitant]
     Active Substance: VINORELBINE TARTRATE
     Indication: INFLAMMATORY CARCINOMA OF THE BREAST
     Dosage: UNK
     Dates: start: 20100316, end: 20100316
  22. CYTOXAN [Concomitant]
     Active Substance: CYCLOPHOSPHAMIDE
     Dosage: UNK
     Dates: start: 20120727, end: 20120727
  23. MITOXANTRONE [Concomitant]
     Active Substance: MITOXANTRONE HYDROCHLORIDE
     Dosage: UNK, Q3W
     Dates: start: 20120618, end: 20120618
  24. PLATINOL AQ [Concomitant]
     Dosage: UNK
     Dates: start: 20120727, end: 20120727
  25. ADRUCIL [Concomitant]
     Active Substance: FLUOROURACIL
     Dosage: UNK
     Dates: start: 20120727, end: 20120727
  26. ZOLOFT [Concomitant]
     Active Substance: SERTRALINE HYDROCHLORIDE
     Dosage: UNK
     Dates: start: 2000, end: 2016
  27. TYKERB [Concomitant]
     Active Substance: LAPATINIB DITOSYLATE
     Dosage: UNK
     Dates: start: 20091117, end: 20140121
  28. DIFLUCAN [Concomitant]
     Active Substance: FLUCONAZOLE
     Dosage: UNK
     Dates: start: 20091117, end: 20140121
  29. VITAMINS NOS [Concomitant]
     Active Substance: VITAMINS
     Dosage: UNK
     Dates: start: 2000, end: 2016
  30. AMBIEN [Concomitant]
     Active Substance: ZOLPIDEM TARTRATE
     Dosage: UNK
     Dates: start: 2000, end: 2016
  31. XANAX [Concomitant]
     Active Substance: ALPRAZOLAM
     Dosage: UNK
     Dates: start: 20091117, end: 20140121
  32. BACTRIM [Concomitant]
     Active Substance: SULFAMETHOXAZOLE\TRIMETHOPRIM
  33. ZIAC [BISOPROLOL FUMARATE;HYDROCHLOROTHIAZIDE] [Concomitant]

REACTIONS (3)
  - Emotional distress [Unknown]
  - Psychological trauma [Unknown]
  - Alopecia [Recovering/Resolving]

NARRATIVE: CASE EVENT DATE: 201303
